FAERS Safety Report 4876989-3 (Version None)
Quarter: 2005Q4

REPORT INFORMATION
  Report Type: 
  Country: None (occurrence: None)
  Receive Date: 20051206
  Receipt Date: 20050919
  Transmission Date: 20060501
  Serious: No
  Sender: FDA-Public Use
  Company Number: USA 0509108616

PATIENT
  Age: 77 Year
  Sex: Female

DRUGS (5)
  1. CYMBALTA [Suspect]
     Indication: FIBROMYALGIA
     Dosage: 60 MG DAY
     Dates: start: 20050101
  2. ZELNORM [Concomitant]
  3. LISINOPRIL [Concomitant]
  4. ZETIA [Concomitant]
  5. XANAX [Concomitant]

REACTIONS (5)
  - ASTHENIA [None]
  - GAIT DISTURBANCE [None]
  - HEADACHE [None]
  - NASOPHARYNGITIS [None]
  - TINNITUS [None]
